FAERS Safety Report 10227519 (Version 1)
Quarter: 2014Q2

REPORT INFORMATION
  Report Type: Spontaneous
  Country: US (occurrence: US)
  Receive Date: 20140610
  Receipt Date: 20140610
  Transmission Date: 20141212
  Serious: No
  Sender: FDA-Public Use
  Company Number: US-VIIV HEALTHCARE LIMITED-A1070495A

PATIENT
  Sex: Female

DRUGS (4)
  1. TIVICAY [Suspect]
     Indication: HIV TEST POSITIVE
     Dosage: 50MG PER DAY
  2. EPZICOM [Concomitant]
  3. OXYCODONE [Concomitant]
  4. PAIN MEDICATION [Concomitant]

REACTIONS (1)
  - Paraesthesia [Unknown]
